FAERS Safety Report 8906367 (Version 1)
Quarter: 2012Q4

REPORT INFORMATION
  Report Type: Spontaneous
  Country: US (occurrence: None)
  Receive Date: 20121112
  Receipt Date: 20121112
  Transmission Date: 20130627
  Serious: Yes (Hospitalization)
  Sender: FDA-Public Use
  Company Number: None

PATIENT
  Age: 60 Year
  Sex: Female
  Weight: 49.9 kg

DRUGS (1)
  1. FOSAMAX [Suspect]
     Indication: BONE DISORDER
     Dosage: 1 a week
     Dates: start: 2004, end: 2011

REACTIONS (2)
  - Femur fracture [None]
  - Pathological fracture [None]
